FAERS Safety Report 9852721 (Version 1)
Quarter: 2014Q1

REPORT INFORMATION
  Report Type: Spontaneous
  Country: US (occurrence: US)
  Receive Date: 20140129
  Receipt Date: 20140129
  Transmission Date: 20141002
  Serious: No
  Sender: FDA-Public Use
  Company Number: US-B.I. PHARMACEUTICALS,INC./RIDGEFIELD-2014-BI-02439BP

PATIENT
  Sex: Female

DRUGS (2)
  1. ZANTAC (RANITIDINE HYDROCHLORIDE) [Suspect]
     Indication: DYSPEPSIA
     Route: 048
     Dates: start: 20140116
  2. ZANTAC (RANITIDINE HYDROCHLORIDE) [Suspect]
     Indication: DYSPEPSIA

REACTIONS (2)
  - Burning sensation [Not Recovered/Not Resolved]
  - Feeling abnormal [Not Recovered/Not Resolved]
